FAERS Safety Report 7383167-5 (Version None)
Quarter: 2011Q1

REPORT INFORMATION
  Report Type: 
  Country: None (occurrence: None)
  Receive Date: 20110330
  Receipt Date: 20110322
  Transmission Date: 20110831
  Serious: Yes (Hospitalization)
  Sender: FDA-Public Use
  Company Number: US-ASTRAZENECA-2011SE16177

PATIENT
  Age: 87 Year
  Sex: Male
  Weight: 66.7 kg

DRUGS (8)
  1. SEROQUEL [Suspect]
     Route: 048
  2. HYDRALAZINE HCL [Concomitant]
  3. PLAVIX [Concomitant]
  4. AMLODIPINE BESYLATE [Concomitant]
  5. ASPIRIN [Concomitant]
  6. SEROQUEL [Suspect]
     Indication: ANXIOLYTIC THERAPY
     Route: 048
     Dates: start: 20100101
  7. SEROQUEL [Suspect]
     Route: 048
  8. SEROQUEL [Suspect]
     Route: 048

REACTIONS (6)
  - FLASHBACK [None]
  - CEREBROVASCULAR ACCIDENT [None]
  - MYOCARDIAL INFARCTION [None]
  - BODY HEIGHT DECREASED [None]
  - NIGHTMARE [None]
  - WEIGHT DECREASED [None]
